FAERS Safety Report 6548036-9 (Version None)
Quarter: 2010Q1

REPORT INFORMATION
  Report Type: 
  Country: None (occurrence: None)
  Receive Date: 20100124
  Receipt Date: 20091221
  Transmission Date: 20100710
  Serious: No
  Sender: FDA-Public Use
  Company Number: CA-ALEXION-A200901116

PATIENT
  Sex: Female

DRUGS (8)
  1. SOLIRIS [Suspect]
     Indication: PAROXYSMAL NOCTURNAL HAEMOGLOBINURIA
     Dosage: 600 MG, QW
     Route: 042
     Dates: start: 20091007, end: 20091001
  2. SOLIRIS [Suspect]
     Dosage: 900 MG, UNK
     Route: 042
     Dates: start: 20091104
  3. LOESTRIN 1.5/30 [Concomitant]
     Indication: CONTRACEPTION
     Dosage: UNK
     Route: 048
     Dates: start: 20091230
  4. PORTIA-21 [Concomitant]
     Indication: CONTRACEPTION
     Dosage: UNK
     Route: 048
     Dates: start: 20081201, end: 20091229
  5. FOLIC ACID [Concomitant]
     Dosage: UNK
     Route: 048
  6. VALTREX [Concomitant]
     Indication: PROPHYLAXIS
     Dosage: UNK
     Route: 048
  7. CALCIUM W/MAGNESIUM [Concomitant]
     Dosage: UNK
     Route: 048
  8. VITAMIN C                          /00008001/ [Concomitant]
     Dosage: UNK
     Route: 048

REACTIONS (2)
  - DYSMENORRHOEA [None]
  - METRORRHAGIA [None]
